FAERS Safety Report 25660363 (Version 2)
Quarter: 2025Q3

REPORT INFORMATION
  Report Type: Spontaneous
  Country: TR (occurrence: TR)
  Receive Date: 20250808
  Receipt Date: 20250820
  Transmission Date: 20251021
  Serious: Yes (Other)
  Sender: TEVA
  Company Number: TR-ABBVIE-6396995

PATIENT
  Age: 27 Year
  Sex: Female

DRUGS (1)
  1. ACITRETIN [Suspect]
     Active Substance: ACITRETIN
     Indication: Cutaneous T-cell lymphoma
     Route: 048

REACTIONS (3)
  - Cholangitis sclerosing [Unknown]
  - Pancreatitis chronic [Unknown]
  - Hepatotoxicity [Unknown]
